FAERS Safety Report 12190592 (Version 1)
Quarter: 2016Q1

REPORT INFORMATION
  Report Type: Spontaneous
  Country: US (occurrence: None)
  Receive Date: 20160317
  Receipt Date: 20160317
  Transmission Date: 20160526
  Serious: Yes (Hospitalization)
  Sender: FDA-Public Use
  Company Number: None

PATIENT
  Age: 63 Year
  Sex: Female
  Weight: 85.4 kg

DRUGS (2)
  1. ENOXAPARIN [Suspect]
     Active Substance: ENOXAPARIN
     Route: 058
     Dates: start: 20151206, end: 20151214
  2. WARFARIN [Suspect]
     Active Substance: WARFARIN
     Route: 048
     Dates: start: 20151210, end: 20151214

REACTIONS (4)
  - Pulmonary embolism [None]
  - Abdominal wall haematoma [None]
  - Haemoglobin decreased [None]
  - International normalised ratio decreased [None]

NARRATIVE: CASE EVENT DATE: 20151205
